FAERS Safety Report 24755290 (Version 2)
Quarter: 2025Q1

REPORT INFORMATION
  Report Type: Spontaneous
  Country: FR (occurrence: FR)
  Receive Date: 20241219
  Receipt Date: 20250127
  Transmission Date: 20250408
  Serious: Yes (Other)
  Sender: FERRING
  Company Number: FR-FERRINGPH-2024FE05773

PATIENT

DRUGS (1)
  1. DINOPROSTONE [Suspect]
     Active Substance: DINOPROSTONE
     Indication: Labour induction
     Dosage: 1 DOSAGE FORM, ONCE/SINGLE
     Route: 067
     Dates: start: 20240920, end: 20240920

REACTIONS (4)
  - Uterine rupture [Recovered/Resolved with Sequelae]
  - Syncope [Recovered/Resolved]
  - Contraindicated product administered [Recovered/Resolved]
  - Failure to suspend medication [Recovered/Resolved]

NARRATIVE: CASE EVENT DATE: 20240920
